FAERS Safety Report 12467296 (Version 1)
Quarter: 2016Q2

REPORT INFORMATION
  Report Type: Spontaneous
  Country: US (occurrence: US)
  Receive Date: 20160615
  Receipt Date: 20160615
  Transmission Date: 20160815
  Serious: No
  Sender: FDA-Public Use
  Company Number: US-PFIZER INC-2016280206

PATIENT
  Sex: Male

DRUGS (2)
  1. REPLENS [Suspect]
     Active Substance: CARBOMER 934\GLYCERIN\METHYLPARABEN\PROPYLPARABEN\SODIUM HYDROXIDE
     Indication: VULVOVAGINAL DRYNESS
  2. PREMARIN [Suspect]
     Active Substance: ESTROGENS, CONJUGATED
     Dosage: UNK(3 TIMES/WEEK)

REACTIONS (3)
  - Exposure via partner [Unknown]
  - Product quality issue [Not Recovered/Not Resolved]
  - Penis disorder [Not Recovered/Not Resolved]
